FAERS Safety Report 10354277 (Version 2)
Quarter: 2014Q3

REPORT INFORMATION
  Report Type: Report from Study
  Country: JP (occurrence: JP)
  Receive Date: 20140731
  Receipt Date: 20140912
  Transmission Date: 20150326
  Serious: Yes (Death, Hospitalization)
  Sender: FDA-Public Use
  Company Number: JP-ACTELION-A-CH2014-102964

PATIENT
  Age: 81 Year
  Sex: Female

DRUGS (11)
  1. TRACLEER [Suspect]
     Active Substance: BOSENTAN\BOSENTAN MONOHYDRATE
     Dosage: 62.5 MG, BID
     Route: 048
     Dates: start: 20120605, end: 20120717
  2. TRACLEER [Suspect]
     Active Substance: BOSENTAN\BOSENTAN MONOHYDRATE
     Indication: PULMONARY ARTERIAL HYPERTENSION
     Dosage: 125 MG, BID
     Route: 048
     Dates: start: 20120718, end: 20140330
  3. CLARITHROMYCIN. [Concomitant]
     Active Substance: CLARITHROMYCIN
  4. OXYGEN. [Concomitant]
     Active Substance: OXYGEN
  5. DEXTROMETHORPHAN HYDROBROMIDE MONOHYDRATE [Concomitant]
  6. RALOXIFENE HYDROCHLORIDE. [Concomitant]
     Active Substance: RALOXIFENE HYDROCHLORIDE
  7. ETHYL ICOSAPENTATE [Concomitant]
     Active Substance: ETHYL ICOSAPENTATE
  8. DIHYDROCODEINE PHOSPHATE [Concomitant]
     Active Substance: DIHYDROCODEINE PHOSPHATE
  9. FERROUS SODIUM CITRATE [Concomitant]
  10. ALFACALCIDOL [Concomitant]
     Active Substance: ALFACALCIDOL
  11. TOCOPHERYL NICOTINATE [Concomitant]
     Active Substance: TOCOPHERYL NICOTINATE, D-.ALPHA.

REACTIONS (5)
  - Bone operation [Unknown]
  - Interstitial lung disease [Fatal]
  - Respiratory failure [Fatal]
  - Femoral neck fracture [Recovered/Resolved]
  - Anaemia [Recovered/Resolved]

NARRATIVE: CASE EVENT DATE: 20131224
